FAERS Safety Report 4841506-0 (Version None)
Quarter: 2005Q4

REPORT INFORMATION
  Report Type: 
  Country: None (occurrence: None)
  Receive Date: 20051130
  Receipt Date: 20050808
  Transmission Date: 20060501
  Serious: No
  Sender: FDA-Public Use
  Company Number: US-GLAXOSMITHKLINE-A0569728A

PATIENT
  Age: 56 Year
  Sex: Female

DRUGS (3)
  1. WELLBUTRIN XL [Suspect]
     Indication: DRUG USE FOR UNKNOWN INDICATION
     Route: 048
  2. LEXAPRO [Concomitant]
  3. ATIVAN [Concomitant]

REACTIONS (4)
  - DEPRESSION [None]
  - LOSS OF LIBIDO [None]
  - ORGASMIC SENSATION DECREASED [None]
  - WEIGHT INCREASED [None]
